FAERS Safety Report 5236942-7 (Version None)
Quarter: 2007Q1

REPORT INFORMATION
  Report Type: 
  Country: None (occurrence: None)
  Receive Date: 20070213
  Receipt Date: 20070131
  Transmission Date: 20070707
  Serious: Yes (Other)
  Sender: FDA-Public Use
  Company Number: PHMT2007CA00614

PATIENT
  Sex: Female

DRUGS (2)
  1. ZOLOFT [Concomitant]
  2. ESTRADOT [Suspect]
     Route: 062

REACTIONS (2)
  - CONDITION AGGRAVATED [None]
  - DEPRESSION [None]
